FAERS Safety Report 24823290 (Version 1)
Quarter: 2025Q1

REPORT INFORMATION
  Report Type: Spontaneous
  Country: US (occurrence: US)
  Receive Date: 20250109
  Receipt Date: 20250109
  Transmission Date: 20250408
  Serious: No
  Sender: AUROBINDO
  Company Number: US-AUROBINDO-AUR-APL-2024-042383

PATIENT

DRUGS (2)
  1. CLOZAPINE [Suspect]
     Active Substance: CLOZAPINE
     Indication: Product used for unknown indication
     Dosage: UNK, TWO TIMES A DAY,CLOZAPINE TABLET USP 75 MG
     Route: 065
  2. DEPAKOTE ER [Concomitant]
     Active Substance: DIVALPROEX SODIUM
     Indication: Product used for unknown indication
     Dosage: UNK, TWO TIMES A DAY
     Route: 065

REACTIONS (2)
  - Product dose omission issue [Unknown]
  - Imprisonment [Unknown]
